FAERS Safety Report 6889903-6 (Version None)
Quarter: 2010Q3

REPORT INFORMATION
  Report Type: 
  Country: None (occurrence: None)
  Receive Date: 20100730
  Receipt Date: 20080611
  Transmission Date: 20110219
  Serious: No
  Sender: FDA-Public Use
  Company Number: US-PFIZER INC-2008049097

PATIENT
  Sex: Female

DRUGS (5)
  1. LIPITOR [Suspect]
  2. ATENOLOL [Suspect]
     Indication: HYPERTENSION
  3. ACCUPRIL [Suspect]
     Indication: HYPERTENSION
  4. SPIRONOLACTONE [Suspect]
  5. SYNTHROID [Suspect]

REACTIONS (1)
  - DIZZINESS [None]
